FAERS Safety Report 15244142 (Version 1)
Quarter: 2018Q3

REPORT INFORMATION
  Report Type: Spontaneous
  Country: US (occurrence: US)
  Receive Date: 20180806
  Receipt Date: 20180806
  Transmission Date: 20181010
  Serious: No
  Sender: FDA-Public Use
  Company Number: US-BAYER-2018-142937

PATIENT

DRUGS (2)
  1. ALEVE [Suspect]
     Active Substance: NAPROXEN SODIUM
  2. VIOXX [Concomitant]
     Active Substance: ROFECOXIB

REACTIONS (2)
  - Rash [None]
  - Hypersensitivity [Unknown]
